FAERS Safety Report 19163825 (Version 1)
Quarter: 2021Q2

REPORT INFORMATION
  Report Type: Spontaneous
  Country: IN (occurrence: US)
  Receive Date: 20210421
  Receipt Date: 20210421
  Transmission Date: 20210717
  Serious: Yes (Hospitalization, Other)
  Sender: FDA-Public Use
  Company Number: IN-ACCORD-222931

PATIENT
  Age: 70 Year
  Sex: Male

DRUGS (4)
  1. GEMCITABINE. [Concomitant]
     Active Substance: GEMCITABINE
     Indication: DIFFUSE LARGE B-CELL LYMPHOMA
  2. OXALIPLATIN. [Suspect]
     Active Substance: OXALIPLATIN
     Indication: DIFFUSE LARGE B-CELL LYMPHOMA
  3. RITUXIMAB. [Concomitant]
     Active Substance: RITUXIMAB
     Indication: DIFFUSE LARGE B-CELL LYMPHOMA
  4. IFOSFAMIDE. [Concomitant]
     Active Substance: IFOSFAMIDE
     Indication: DIFFUSE LARGE B-CELL LYMPHOMA

REACTIONS (3)
  - Venoocclusive liver disease [Recovering/Resolving]
  - Hepatitis E [Recovering/Resolving]
  - Hepatitis B reactivation [Recovering/Resolving]
